FAERS Safety Report 5092084-5 (Version None)
Quarter: 2006Q3

REPORT INFORMATION
  Report Type: 
  Country: None (occurrence: None)
  Receive Date: 20060825
  Receipt Date: 20060811
  Transmission Date: 20061208
  Serious: Yes (Hospitalization)
  Sender: FDA-Public Use
  Company Number: 8013807

PATIENT
  Age: 76 Year
  Sex: Female
  Weight: 65 kg

DRUGS (7)
  1. KEPPRA [Suspect]
     Indication: EPILEPSY
     Dosage: 500 MG 2/D PO
     Route: 048
  2. KEPPRA [Suspect]
     Indication: EPILEPSY
     Dosage: 750 MG/D PO
     Route: 048
  3. KEPPRA [Suspect]
     Indication: EPILEPSY
     Dosage: 500 MG/D PO
     Route: 048
  4. KEPPRA [Suspect]
     Indication: EPILEPSY
     Dosage: 500 MG 2/D PO
     Route: 048
  5. KEPPRA [Suspect]
     Indication: EPILEPSY
     Dosage: 750 MG/D PO
     Route: 048
  6. LAMICTAL [Concomitant]
  7. MYLEPSIN [Concomitant]

REACTIONS (2)
  - ASTHENIA [None]
  - TREATMENT NONCOMPLIANCE [None]
